FAERS Safety Report 7340030-3 (Version None)
Quarter: 2011Q1

REPORT INFORMATION
  Report Type: 
  Country: None (occurrence: None)
  Receive Date: 20110309
  Receipt Date: 20110301
  Transmission Date: 20110831
  Serious: Yes (Other)
  Sender: FDA-Public Use
  Company Number: JP-ASTELLAS-2011US000894

PATIENT
  Age: 20 Year
  Sex: Female

DRUGS (20)
  1. PROPOFOL [Concomitant]
     Dosage: 6.6 MG/KG/HR, UNK
     Route: 042
  2. LINEZOLID [Concomitant]
     Indication: PNEUMONIA
     Dosage: UNK
     Route: 065
  3. MEROPENEM [Concomitant]
     Indication: PNEUMONIA
     Dosage: UNK
     Route: 065
  4. FENTANYL [Concomitant]
     Dosage: 80 UG/HR, UNK
     Route: 042
  5. FENTANYL [Concomitant]
     Dosage: 400 UG/HR, UNK
     Route: 042
  6. FENTANYL [Concomitant]
     Dosage: 600 UG/HR, UNK
     Route: 042
  7. MIDAZOLAM [Concomitant]
     Indication: SEDATIVE THERAPY
     Dosage: UNK
     Route: 065
  8. PROPOFOL [Concomitant]
     Dosage: 9 MG/KG/HR, UNK
     Route: 042
  9. CYCLOPHOSPHAMIDE [Concomitant]
     Indication: NON-HODGKIN'S LYMPHOMA
     Dosage: UNK
     Route: 065
  10. PROPOFOL [Concomitant]
     Dosage: 7.5 MG/KG/HR, UNK
     Route: 042
  11. DOXORUBICIN [Concomitant]
     Indication: NON-HODGKIN'S LYMPHOMA
     Dosage: UNK
     Route: 065
  12. VINBLASTINE SULFATE [Concomitant]
     Indication: NON-HODGKIN'S LYMPHOMA
     Dosage: UNK
     Route: 065
  13. FENTANYL [Concomitant]
     Indication: ANALGESIC THERAPY
     Dosage: 25 UG/HR, UNK
     Route: 042
  14. DACARBAZINE [Concomitant]
     Indication: NON-HODGKIN'S LYMPHOMA
     Dosage: UNK
     Route: 065
  15. PROPOFOL [Concomitant]
     Dosage: 3 MG/KG/HR, UNK
     Route: 042
  16. VINCRISTINE [Concomitant]
     Indication: NON-HODGKIN'S LYMPHOMA
     Dosage: UNK
     Route: 065
  17. AMBISOME [Suspect]
     Indication: CANDIDIASIS
     Dosage: UNK
     Route: 065
  18. PROPOFOL [Concomitant]
     Indication: SEDATION
     Dosage: 2.4 MG/KG/HR, UNK
     Route: 042
  19. PROPOFOL [Concomitant]
     Dosage: 600 UG/HR, UNK
     Route: 042
  20. PIPERACILLIN AND TAZOBACTAM [Concomitant]
     Indication: PNEUMONIA
     Dosage: UNK
     Route: 065

REACTIONS (5)
  - INTRA-UTERINE DEATH [None]
  - DRUG EXPOSURE DURING PREGNANCY [None]
  - HYPERTRIGLYCERIDAEMIA [None]
  - FOETAL GROWTH RESTRICTION [None]
  - OLIGOHYDRAMNIOS [None]
